FAERS Safety Report 25656158 (Version 1)
Quarter: 2025Q3

REPORT INFORMATION
  Report Type: Spontaneous
  Country: US (occurrence: US)
  Receive Date: 20250807
  Receipt Date: 20250807
  Transmission Date: 20251020
  Serious: No
  Sender: MYLAN
  Company Number: US-MYLANLABS-2025M1066443

PATIENT
  Sex: Female
  Weight: 63.5 kg

DRUGS (1)
  1. GABAPENTIN [Suspect]
     Active Substance: GABAPENTIN
     Indication: Neuropathy peripheral
     Dosage: 100 MILLIGRAM, TID (3 TIMES A DAY)

REACTIONS (1)
  - Off label use [Unknown]
